FAERS Safety Report 16376142 (Version 2)
Quarter: 2019Q2

REPORT INFORMATION
  Report Type: Spontaneous
  Country: JP (occurrence: JP)
  Receive Date: 20190531
  Receipt Date: 20190628
  Transmission Date: 20190711
  Serious: Yes (Other)
  Sender: FDA-Public Use
  Company Number: JP-ELI_LILLY_AND_COMPANY-JP201905012967

PATIENT
  Age: 45 Year
  Sex: Male
  Weight: 85 kg

DRUGS (5)
  1. DULOXETINE HYDROCHLORIDE. [Suspect]
     Active Substance: DULOXETINE HYDROCHLORIDE
     Dosage: 40 MG, DAILY
     Route: 048
     Dates: start: 2016, end: 20190509
  2. DULOXETINE HYDROCHLORIDE. [Suspect]
     Active Substance: DULOXETINE HYDROCHLORIDE
     Indication: PROPHYLAXIS
     Dosage: UNK
     Route: 048
  3. DULOXETINE HYDROCHLORIDE. [Suspect]
     Active Substance: DULOXETINE HYDROCHLORIDE
     Dosage: 20 MG, DAILY
     Route: 048
     Dates: start: 20190510, end: 20190513
  4. DULOXETINE HYDROCHLORIDE. [Suspect]
     Active Substance: DULOXETINE HYDROCHLORIDE
     Dosage: 20 MG, OTHER
     Route: 048
     Dates: start: 20190514
  5. INTERFERON [Concomitant]
     Active Substance: INTERFERON
     Indication: HEPATITIS B

REACTIONS (15)
  - Depression [Unknown]
  - Hyperhidrosis [Unknown]
  - Anaphylactic reaction [Unknown]
  - Hepatic function abnormal [Unknown]
  - Off label use [Recovered/Resolved]
  - Paraesthesia [Recovering/Resolving]
  - Withdrawal syndrome [Unknown]
  - Middle insomnia [Recovering/Resolving]
  - Palpitations [Recovering/Resolving]
  - Anxiety [Unknown]
  - Dyspnoea [Unknown]
  - Cold sweat [Unknown]
  - Weight decreased [Unknown]
  - Retinal haemorrhage [Unknown]
  - Dizziness [Unknown]

NARRATIVE: CASE EVENT DATE: 201811
